FAERS Safety Report 24304543 (Version 1)
Quarter: 2024Q3

REPORT INFORMATION
  Report Type: Other
  Country: US (occurrence: US)
  Receive Date: 20240910
  Receipt Date: 20240910
  Transmission Date: 20241017
  Serious: No
  Sender: SIGMA TAU
  Company Number: US-LEADIANT BIOSCIENCES, INC.-2023STPI000297

PATIENT
  Sex: Female

DRUGS (1)
  1. MATULANE [Suspect]
     Active Substance: PROCARBAZINE HYDROCHLORIDE
     Indication: Hodgkin^s disease nodular sclerosis stage III
     Dosage: 50 MILLIGRAMS, 3 CAPSULES [150MG TOTAL] DAILY ON DAYS 1-7 EVERY 21 DAYS
     Route: 048
     Dates: start: 20230616

REACTIONS (3)
  - Headache [Unknown]
  - Throat irritation [Unknown]
  - Tongue discomfort [Unknown]
